FAERS Safety Report 6953320-0 (Version None)
Quarter: 2010Q3

REPORT INFORMATION
  Report Type: 
  Country: None (occurrence: None)
  Receive Date: 20100829
  Receipt Date: 20100607
  Transmission Date: 20110219
  Serious: No
  Sender: FDA-Public Use
  Company Number: US-ABBOTT-10P-163-0650229-00

PATIENT

DRUGS (7)
  1. NIASPAN [Suspect]
     Indication: BLOOD CHOLESTEROL INCREASED
     Dates: start: 20100301, end: 20100415
  2. NIASPAN [Suspect]
     Dates: start: 20100415, end: 20100501
  3. NIASPAN [Suspect]
     Dates: start: 20100501
  4. LOTREL [Concomitant]
     Indication: HYPERTENSION
  5. AGGRENOX [Concomitant]
     Indication: TRANSIENT ISCHAEMIC ATTACK
  6. VITAMIN B [Concomitant]
     Indication: NEURALGIA
  7. ANTI-INFLAMMATORY [Concomitant]
     Indication: BONE PAIN

REACTIONS (1)
  - PRURITUS [None]
